FAERS Safety Report 21181205 (Version 2)
Quarter: 2022Q3

REPORT INFORMATION
  Report Type: Spontaneous
  Country: DE (occurrence: DE)
  Receive Date: 20220806
  Receipt Date: 20220819
  Transmission Date: 20221027
  Serious: Yes (Death, Hospitalization, Other)
  Sender: FDA-Public Use
  Company Number: None

PATIENT
  Age: 56 Year
  Sex: Male

DRUGS (15)
  1. GEMCITABINE [Suspect]
     Active Substance: GEMCITABINE
     Indication: Diffuse large B-cell lymphoma
  2. GEMCITABINE [Suspect]
     Active Substance: GEMCITABINE
     Indication: Angioimmunoblastic T-cell lymphoma
  3. RITUXIMAB [Suspect]
     Active Substance: RITUXIMAB
     Indication: Diffuse large B-cell lymphoma
     Dosage: SIX CYCLE
  4. RITUXIMAB [Suspect]
     Active Substance: RITUXIMAB
     Indication: Angioimmunoblastic T-cell lymphoma
  5. OXALIPLATIN [Suspect]
     Active Substance: OXALIPLATIN
     Indication: Diffuse large B-cell lymphoma
  6. OXALIPLATIN [Suspect]
     Active Substance: OXALIPLATIN
     Indication: Angioimmunoblastic T-cell lymphoma
  7. IFOSFAMIDE [Suspect]
     Active Substance: IFOSFAMIDE
     Indication: Diffuse large B-cell lymphoma
  8. IFOSFAMIDE [Suspect]
     Active Substance: IFOSFAMIDE
     Indication: Angioimmunoblastic T-cell lymphoma
  9. CARBOPLATIN [Suspect]
     Active Substance: CARBOPLATIN
     Indication: Diffuse large B-cell lymphoma
  10. CARBOPLATIN [Suspect]
     Active Substance: CARBOPLATIN
     Indication: Angioimmunoblastic T-cell lymphoma
  11. ETOPOSIDE [Suspect]
     Active Substance: ETOPOSIDE
     Indication: Diffuse large B-cell lymphoma
  12. ETOPOSIDE [Suspect]
     Active Substance: ETOPOSIDE
     Indication: Angioimmunoblastic T-cell lymphoma
  13. CIDOFOVIR [Suspect]
     Active Substance: CIDOFOVIR
     Indication: Adenovirus infection
  14. CIDOFOVIR [Suspect]
     Active Substance: CIDOFOVIR
     Dosage: REDUCED TO 50 MG
  15. CIDOFOVIR [Suspect]
     Active Substance: CIDOFOVIR

REACTIONS (6)
  - Respiratory failure [Fatal]
  - Sepsis [Fatal]
  - Febrile neutropenia [Fatal]
  - Cardiac arrest [Fatal]
  - Adenovirus reactivation [Unknown]
  - Renal failure [Fatal]
